FAERS Safety Report 11534277 (Version 1)
Quarter: 2015Q3

REPORT INFORMATION
  Report Type: Spontaneous
  Country: US (occurrence: US)
  Receive Date: 20150922
  Receipt Date: 20150922
  Transmission Date: 20151125
  Serious: No
  Sender: FDA-Public Use
  Company Number: US-BEH-2015051991

PATIENT

DRUGS (1)
  1. ALBURX [Suspect]
     Active Substance: ALBUMIN (HUMAN)
     Indication: PRODUCT USED FOR UNKNOWN INDICATION

REACTIONS (2)
  - Intercepted drug dispensing error [Unknown]
  - Circumstance or information capable of leading to medication error [Unknown]
